FAERS Safety Report 6784547-9 (Version None)
Quarter: 2010Q2

REPORT INFORMATION
  Report Type: 
  Country: None (occurrence: None)
  Receive Date: 20100622
  Receipt Date: 20100616
  Transmission Date: 20101027
  Serious: Yes (Other)
  Sender: FDA-Public Use
  Company Number: CA-BRISTOL-MYERS SQUIBB COMPANY-15156961

PATIENT
  Age: 76 Year
  Sex: Female

DRUGS (6)
  1. ORENCIA [Suspect]
     Indication: RHEUMATOID ARTHRITIS
     Dosage: LAST DOSE ON 16JUN2010; NO OF INF:16
     Route: 042
     Dates: start: 20090702
  2. LEVOTHYROXINE SODIUM [Concomitant]
  3. PREDNISONE [Concomitant]
  4. VITAMINS [Concomitant]
  5. ACTONEL [Concomitant]
  6. METHOTREXATE [Concomitant]
     Dosage: TABS

REACTIONS (4)
  - GAIT DISTURBANCE [None]
  - HYPOVENTILATION [None]
  - MUSCULAR WEAKNESS [None]
  - RALES [None]
